FAERS Safety Report 6879653-4 (Version None)
Quarter: 2010Q3

REPORT INFORMATION
  Report Type: 
  Country: None (occurrence: None)
  Receive Date: 20100728
  Receipt Date: 20100407
  Transmission Date: 20110219
  Serious: No
  Sender: FDA-Public Use
  Company Number: US-MYLANLABS-2010S1001456

PATIENT
  Age: 7 Decade
  Sex: Female
  Weight: 53.98 kg

DRUGS (9)
  1. CLONIDINE HYDROCHLORIDE [Suspect]
     Indication: BLOOD PRESSURE INCREASED
     Route: 048
     Dates: start: 20080402, end: 20090217
  2. CLONIDINE HYDROCHLORIDE [Suspect]
     Indication: HYPERTENSION
     Route: 048
     Dates: start: 20090201, end: 20100301
  3. CLONIDINE HYDROCHLORIDE [Suspect]
     Route: 048
     Dates: start: 20100311
  4. LOVASTATIN [Concomitant]
     Indication: BLOOD CHOLESTEROL INCREASED
     Route: 048
  5. DIOVAN [Concomitant]
     Indication: BLOOD PRESSURE INCREASED
     Route: 048
  6. ASPIRIN [Concomitant]
     Route: 048
  7. UNISOM /00000402/ [Concomitant]
     Indication: INSOMNIA
  8. TEKTURNA /01763602/ [Concomitant]
     Dates: start: 20100219
  9. TRAZODONE [Concomitant]
     Dates: start: 20091130

REACTIONS (16)
  - ALOPECIA [None]
  - ASTHENIA [None]
  - BLOOD PRESSURE INCREASED [None]
  - CONSTIPATION [None]
  - DECREASED APPETITE [None]
  - DRUG INEFFECTIVE [None]
  - DRY MOUTH [None]
  - DRY SKIN [None]
  - ERYTHEMA [None]
  - FATIGUE [None]
  - HYPOAESTHESIA [None]
  - INFLAMMATION [None]
  - INSOMNIA [None]
  - PAIN IN EXTREMITY [None]
  - SKIN WRINKLING [None]
  - WEIGHT DECREASED [None]
